FAERS Safety Report 6311048-4 (Version None)
Quarter: 2009Q3

REPORT INFORMATION
  Report Type: 
  Country: None (occurrence: None)
  Receive Date: 20090817
  Receipt Date: 20090806
  Transmission Date: 20100115
  Serious: Yes (Hospitalization)
  Sender: FDA-Public Use
  Company Number: US-ELI_LILLY_AND_COMPANY-US200907003007

PATIENT
  Sex: Female
  Weight: 65.306 kg

DRUGS (7)
  1. BYETTA [Suspect]
     Indication: TYPE 2 DIABETES MELLITUS
     Dosage: 5 UG, 2/D
     Route: 058
     Dates: start: 20080201, end: 20080301
  2. BYETTA [Suspect]
     Dosage: 10 UG, 2/D
     Route: 058
     Dates: start: 20080301
  3. METFORMIN HCL [Concomitant]
     Dosage: 1000 MG, 2/D
     Route: 058
  4. STARLIX [Concomitant]
     Dosage: 120 MG, 3/D
  5. SYNTHROID [Concomitant]
     Indication: HYPOTHYROIDISM
     Dosage: 75 UG, DAILY (1/D)
  6. PAXIL [Concomitant]
     Indication: DEPRESSION
     Dosage: 10 MG, DAILY (1/D)
  7. HYZAAR [Concomitant]
     Indication: HYPERTENSION
     Dosage: UNK, DAILY (1/D)

REACTIONS (7)
  - ABDOMINAL PAIN UPPER [None]
  - BLOOD GLUCOSE DECREASED [None]
  - BLOOD GLUCOSE INCREASED [None]
  - CAMPYLOBACTER INTESTINAL INFECTION [None]
  - DECREASED APPETITE [None]
  - NAUSEA [None]
  - WEIGHT FLUCTUATION [None]
